FAERS Safety Report 9180973 (Version 4)
Quarter: 2014Q2

REPORT INFORMATION
  Report Type: Report from Study
  Country: US (occurrence: US)
  Receive Date: 20130322
  Receipt Date: 20140429
  Transmission Date: 20141212
  Serious: Yes (Death, Hospitalization, Other)
  Sender: FDA-Public Use
  Company Number: PHEH2013US006422

PATIENT
  Sex: Male
  Weight: 78.5 kg

DRUGS (7)
  1. AFINITOR [Suspect]
     Indication: PANCREATIC NEUROENDOCRINE TUMOUR
     Dosage: 10 MG, UNK
     Route: 048
  2. AFINITOR [Suspect]
     Dosage: 5 MG, DAILY
     Route: 048
  3. PERCOCET [Concomitant]
     Route: 048
  4. FLOMAX [Concomitant]
     Dosage: 0.4 MG, UNK
  5. MULTIVITAMINS [Concomitant]
     Dosage: 1 DF, DAILY
     Route: 048
  6. POTASSIUM CHLORIDE [Concomitant]
     Dosage: 20 MEQ, DAILY
     Route: 048
  7. FUROSEMIDE [Concomitant]
     Dosage: 20 MG, DAILY
     Route: 048

REACTIONS (18)
  - Pancreatic carcinoma metastatic [Fatal]
  - Prostate cancer [Fatal]
  - Chronic obstructive pulmonary disease [Fatal]
  - Dyspnoea [Fatal]
  - Cough [Fatal]
  - Productive cough [Fatal]
  - Orthopnoea [Fatal]
  - Oedema peripheral [Fatal]
  - Musculoskeletal chest pain [Fatal]
  - Pneumonia [Unknown]
  - Pleural effusion [Unknown]
  - Pyrexia [Unknown]
  - Pulmonary oedema [Unknown]
  - Cardiac failure congestive [Unknown]
  - Tricuspid valve incompetence [Unknown]
  - Liver disorder [Unknown]
  - Lung disorder [Unknown]
  - Anaemia [Unknown]
